FAERS Safety Report 20584633 (Version 1)
Quarter: 2022Q1

REPORT INFORMATION
  Report Type: Spontaneous
  Country: US (occurrence: US)
  Receive Date: 20220311
  Receipt Date: 20220311
  Transmission Date: 20220424
  Serious: Yes (Disabling, Other)
  Sender: FDA-Public Use
  Company Number: US-SA-SAC20220304000091

PATIENT
  Age: 54 Year

DRUGS (1)
  1. LARONIDASE [Suspect]
     Active Substance: LARONIDASE
     Indication: Mucopolysaccharidosis I
     Dosage: 34.8 MG, QW
     Route: 042
     Dates: start: 20210928

REACTIONS (11)
  - Impaired driving ability [Unknown]
  - Retinal injury [Unknown]
  - Corneal disorder [Unknown]
  - Visual field defect [Unknown]
  - Eye disorder [Unknown]
  - Condition aggravated [Unknown]
  - Back disorder [Unknown]
  - Condition aggravated [Unknown]
  - Retching [Unknown]
  - Cataract operation [Unknown]
  - Drug ineffective [Unknown]

NARRATIVE: CASE EVENT DATE: 20220111
